FAERS Safety Report 6211257-9 (Version None)
Quarter: 2009Q2

REPORT INFORMATION
  Report Type: 
  Country: None (occurrence: None)
  Receive Date: 20090602
  Receipt Date: 20090525
  Transmission Date: 20091009
  Serious: Yes (Hospitalization, Other)
  Sender: FDA-Public Use
  Company Number: PHHY2009FR20361

PATIENT
  Age: 38 Year
  Sex: Female

DRUGS (8)
  1. AREDIA [Suspect]
     Dosage: 90 MG, UNK
     Route: 042
     Dates: start: 20081003
  2. AREDIA [Suspect]
     Dosage: UNK
     Route: 042
     Dates: start: 20090112
  3. SKENAN [Suspect]
     Dosage: 40 MG DAILY
     Dates: start: 20080701, end: 20090401
  4. ACTISKENAN [Suspect]
     Dosage: UNK
     Dates: start: 20080701, end: 20090401
  5. RIVOTRIL [Concomitant]
     Dosage: 10 TO 15 DROPS DAILY
  6. DI-ANTALVIC [Concomitant]
  7. EFFERALGAN [Concomitant]
  8. DOLIPRANE [Concomitant]

REACTIONS (4)
  - BILIARY COLIC [None]
  - CHOLECYSTECTOMY [None]
  - CHOLECYSTITIS [None]
  - GAMMA-GLUTAMYLTRANSFERASE INCREASED [None]
